FAERS Safety Report 8076024-2 (Version None)
Quarter: 2012Q1

REPORT INFORMATION
  Report Type: 
  Country: None (occurrence: None)
  Receive Date: 20120127
  Receipt Date: 20110426
  Transmission Date: 20120608
  Serious: No
  Sender: FDA-Public Use
  Company Number: US-GLAXOSMITHKLINE-A0925630A

PATIENT
  Age: 57 Year
  Sex: Male
  Weight: 158.7 kg

DRUGS (9)
  1. WELLBUTRIN [Suspect]
     Route: 048
     Dates: start: 20090301, end: 20090701
  2. CHANTIX [Suspect]
     Indication: EX-TOBACCO USER
     Dosage: .5MG PER DAY
     Route: 048
     Dates: start: 20090301
  3. ACTOPLUS MET [Concomitant]
     Indication: DIABETES MELLITUS
     Route: 048
  4. CHANTIX [Suspect]
     Dosage: 1MG TWICE PER DAY
     Route: 048
     Dates: end: 20090701
  5. LIPITOR [Concomitant]
     Indication: BLOOD CHOLESTEROL INCREASED
     Dosage: 40MG PER DAY
     Route: 048
  6. WELLBUTRIN [Suspect]
     Indication: EX-TOBACCO USER
     Route: 048
     Dates: start: 20080101
  7. METOPROLOL TARTRATE [Concomitant]
     Indication: MYOCARDIAL INFARCTION
     Dosage: 50MG TWICE PER DAY
     Route: 048
  8. QUINAPRIL HYDROCHLORIDE [Concomitant]
     Dosage: 10MG PER DAY
     Route: 048
  9. ASPIRIN [Concomitant]
     Indication: ANTICOAGULANT THERAPY
     Dosage: 325MG PER DAY
     Route: 048

REACTIONS (3)
  - ABNORMAL DREAMS [None]
  - WEIGHT INCREASED [None]
  - DRUG INEFFECTIVE [None]
